FAERS Safety Report 25054467 (Version 4)
Quarter: 2025Q2

REPORT INFORMATION
  Report Type: Spontaneous
  Country: US (occurrence: US)
  Receive Date: 20250307
  Receipt Date: 20250511
  Transmission Date: 20250716
  Serious: Yes (Hospitalization, Other)
  Sender: SANOFI AVENTIS
  Company Number: US-SA-2025SA041715

PATIENT
  Age: 70 Year
  Sex: Male

DRUGS (32)
  1. REZUROCK [Suspect]
     Active Substance: BELUMOSUDIL
     Indication: Lung transplant
     Dosage: 200 MG, QD
     Route: 048
     Dates: start: 202502
  2. ACYCLOVIR [Concomitant]
     Active Substance: ACYCLOVIR
  3. ACYCLOVIR [Concomitant]
     Active Substance: ACYCLOVIR
  4. ALBUTEROL SULFATE [Concomitant]
     Active Substance: ALBUTEROL SULFATE
     Route: 055
  5. ATORVASTATIN CALCIUM [Concomitant]
     Active Substance: ATORVASTATIN CALCIUM
  6. ATORVASTATIN CALCIUM [Concomitant]
     Active Substance: ATORVASTATIN CALCIUM
  7. ATOVAQUONE [Concomitant]
     Active Substance: ATOVAQUONE
  8. CALCIUM\VITAMIN D [Concomitant]
     Active Substance: CALCIUM\VITAMIN D
  9. DOCUSATE SODIUM [Concomitant]
     Active Substance: DOCUSATE SODIUM
  10. FOLIC ACID [Concomitant]
     Active Substance: FOLIC ACID
  11. LANTUS [Concomitant]
     Active Substance: INSULIN GLARGINE
     Route: 058
  12. LEVOTHYROXINE [Concomitant]
     Active Substance: LEVOTHYROXINE
  13. MAGNESIUM [Concomitant]
     Active Substance: MAGNESIUM
  14. MELATONIN [Concomitant]
     Active Substance: MELATONIN
  15. METFORMIN [Concomitant]
     Active Substance: METFORMIN HYDROCHLORIDE
  16. METOPROLOL TARTRATE [Concomitant]
     Active Substance: METOPROLOL TARTRATE
  17. MYCOPHENOLIC ACID [Concomitant]
     Active Substance: MYCOPHENOLIC ACID
  18. PEPCID [Concomitant]
     Active Substance: FAMOTIDINE
  19. PREDNISONE [Concomitant]
     Active Substance: PREDNISONE
  20. PREVYMIS [Concomitant]
     Active Substance: LETERMOVIR
  21. SIROLIMUS [Concomitant]
     Active Substance: SIROLIMUS
  22. TACROLIMUS [Concomitant]
     Active Substance: TACROLIMUS
  23. VORICONAZOLE [Concomitant]
     Active Substance: VORICONAZOLE
  24. YUPELRI [Concomitant]
     Active Substance: REVEFENACIN
     Route: 055
  25. ACETYLCYSTEINE [Concomitant]
     Active Substance: ACETYLCYSTEINE
     Route: 055
  26. ARFORMOTEROL TARTRATE [Concomitant]
     Active Substance: ARFORMOTEROL TARTRATE
     Route: 055
  27. ARFORMOTEROL TARTRATE [Concomitant]
     Active Substance: ARFORMOTEROL TARTRATE
  28. AZITHROMYCIN [Concomitant]
     Active Substance: AZITHROMYCIN
  29. VALGANCICLOVIR [Concomitant]
     Active Substance: VALGANCICLOVIR
  30. NOVOLOG [Concomitant]
     Active Substance: INSULIN ASPART
  31. ASPIRIN [Concomitant]
     Active Substance: ASPIRIN
  32. TAMIFLU [Concomitant]
     Active Substance: OSELTAMIVIR PHOSPHATE

REACTIONS (4)
  - Lung transplant rejection [Recovering/Resolving]
  - Influenza [Recovering/Resolving]
  - Dyspnoea [Not Recovered/Not Resolved]
  - Drug ineffective for unapproved indication [Unknown]

NARRATIVE: CASE EVENT DATE: 20250101
